FAERS Safety Report 4393483-7 (Version None)
Quarter: 2004Q3

REPORT INFORMATION
  Report Type: 
  Country: None (occurrence: None)
  Receive Date: 20040709
  Receipt Date: 20040518
  Transmission Date: 20050211
  Serious: Yes (Other)
  Sender: FDA-Public Use
  Company Number: PHNU2004DE01890

PATIENT
  Age: 67 Year
  Sex: Female

DRUGS (10)
  1. AREDIA [Suspect]
     Indication: METASTASES TO BONE
     Dosage: 90 MG, QMO
     Route: 042
     Dates: start: 20010523, end: 20030701
  2. AREDIA [Suspect]
     Dosage: 60 MG, QMO
     Dates: start: 20030801, end: 20040205
  3. FLUOROURACIL [Concomitant]
     Indication: NEOPLASM PROGRESSION
     Route: 042
     Dates: start: 20020806, end: 20040203
  4. MORPHINE [Concomitant]
     Route: 065
     Dates: start: 20010523, end: 20031007
  5. IBUPROFEN [Concomitant]
     Route: 065
     Dates: start: 20010523, end: 20031007
  6. FOLINIC ACID [Concomitant]
     Indication: NEOPLASM PROGRESSION
     Dosage: 500 MG, BIW
     Route: 042
     Dates: start: 20020806, end: 20040203
  7. STANGYL [Concomitant]
     Indication: DEPRESSION
     Route: 065
     Dates: start: 20020101, end: 20030201
  8. STANGYL [Concomitant]
     Route: 065
     Dates: start: 20030101
  9. PAROXETINE HCL [Suspect]
     Indication: DEPRESSION
     Route: 065
     Dates: start: 20030201, end: 20030101
  10. CHEMOTHERAPEUTICS,OTHER [Concomitant]
     Indication: NEOPLASM PROGRESSION
     Route: 065
     Dates: start: 20030101

REACTIONS (24)
  - ANXIETY [None]
  - BLOOD ALKALINE PHOSPHATASE INCREASED [None]
  - BONE FISTULA [None]
  - DECREASED APPETITE [None]
  - DENTAL CARIES [None]
  - DEPRESSION [None]
  - DESQUAMATION GINGIVAL [None]
  - DRUG TOXICITY [None]
  - EXTRAPYRAMIDAL DISORDER [None]
  - GAMMA-GLUTAMYLTRANSFERASE INCREASED [None]
  - GINGIVITIS [None]
  - IMPAIRED HEALING [None]
  - MENTAL IMPAIRMENT [None]
  - NEOPLASM PROGRESSION [None]
  - OSTEOMYELITIS [None]
  - OSTEONECROSIS [None]
  - PERIODONTITIS [None]
  - PURULENCE [None]
  - RESTLESSNESS [None]
  - TOOTH DISORDER [None]
  - TOOTH EXTRACTION [None]
  - TOOTH LOSS [None]
  - TUMOUR MARKER INCREASED [None]
  - WEIGHT DECREASED [None]
